FAERS Safety Report 14481636 (Version 1)
Quarter: 2018Q1

REPORT INFORMATION
  Report Type: Spontaneous
  Country: HR (occurrence: HR)
  Receive Date: 20180202
  Receipt Date: 20180202
  Transmission Date: 20180509
  Serious: Yes (Other)
  Sender: FDA-Public Use
  Company Number: HR-TEVA-2018-HR-851831

PATIENT
  Age: 26 Year
  Sex: Female

DRUGS (2)
  1. CARBAMAZEPINE. [Suspect]
     Active Substance: CARBAMAZEPINE
     Route: 048
     Dates: start: 20171013, end: 20171013
  2. FENAZINE [Suspect]
     Active Substance: FLUPHENAZINE DECANOATE
     Route: 048
     Dates: start: 20171013, end: 20171013

REACTIONS (3)
  - Loss of consciousness [Unknown]
  - Delirium [Unknown]
  - Somnolence [Unknown]

NARRATIVE: CASE EVENT DATE: 20171013
